FAERS Safety Report 10031864 (Version 1)
Quarter: 2014Q1

REPORT INFORMATION
  Report Type: Spontaneous
  Country: FR (occurrence: FR)
  Receive Date: 20140324
  Receipt Date: 20140324
  Transmission Date: 20141002
  Serious: Yes (Other)
  Sender: FDA-Public Use
  Company Number: FR-SA-2014SA031685

PATIENT
  Sex: 0

DRUGS (1)
  1. ZOLPIDEM TARTRATE [Suspect]
     Route: 065

REACTIONS (1)
  - Road traffic accident [Unknown]
